FAERS Safety Report 17955743 (Version 1)
Quarter: 2020Q2

REPORT INFORMATION
  Report Type: Spontaneous
  Country: US (occurrence: US)
  Receive Date: 20200626
  Receipt Date: 20200626
  Transmission Date: 20200714
  Serious: No
  Sender: FDA-Public Use
  Company Number: None

PATIENT
  Age: 38 Year
  Sex: Female
  Weight: 112.5 kg

DRUGS (9)
  1. WELLBUTRIN SR [Concomitant]
     Active Substance: BUPROPION HYDROCHLORIDE
  2. ZOFRAN [Concomitant]
     Active Substance: ONDANSETRON HYDROCHLORIDE
  3. LEXAPRO [Concomitant]
     Active Substance: ESCITALOPRAM OXALATE
  4. NEXIUM [Concomitant]
     Active Substance: ESOMEPRAZOLE MAGNESIUM
  5. SYNTHROID [Concomitant]
     Active Substance: LEVOTHYROXINE SODIUM
  6. IMITREX [Concomitant]
     Active Substance: SUMATRIPTAN SUCCINATE
  7. AIMOVIG [Suspect]
     Active Substance: ERENUMAB-AOOE
     Indication: MIGRAINE
     Dosage: ?          QUANTITY:1 INJECTION(S);OTHER FREQUENCY:ONCE A MONTH;?
     Route: 030
     Dates: start: 20200622, end: 20200622
  8. TOPAMAX [Concomitant]
     Active Substance: TOPIRAMATE
  9. NAPROXEN. [Concomitant]
     Active Substance: NAPROXEN

REACTIONS (12)
  - Tachycardia [None]
  - Dyspnoea [None]
  - Anxiety [None]
  - Tinnitus [None]
  - Night sweats [None]
  - Fatigue [None]
  - Muscle spasms [None]
  - Headache [None]
  - Vertigo [None]
  - Constipation [None]
  - Nausea [None]
  - Cognitive disorder [None]
